FAERS Safety Report 23084216 (Version 1)
Quarter: 2023Q4

REPORT INFORMATION
  Report Type: Spontaneous
  Country: TR (occurrence: TR)
  Receive Date: 20231019
  Receipt Date: 20231019
  Transmission Date: 20240110
  Serious: Yes (Life-Threatening, Hospitalization)
  Sender: FDA-Public Use
  Company Number: TR-TASMAN PHARMA, INC.-2023TSM00168

PATIENT
  Age: 37 Year
  Sex: Male

DRUGS (6)
  1. CLOZAPINE [Suspect]
     Active Substance: CLOZAPINE
     Dosage: 300 MG, 1X/DAY
  2. BIPERIDEN [Suspect]
     Active Substance: BIPERIDEN
     Dosage: 6 MG, 1X/DAY
  3. VALPROATE [Concomitant]
     Active Substance: VALPROIC ACID
     Dosage: 1000 MG, 1X/DAY
  4. AMISULPRIDE [Concomitant]
     Active Substance: AMISULPRIDE
     Dosage: 1200 MG, 1X/DAY
  5. RISPERIDONE [Concomitant]
     Active Substance: RISPERIDONE
     Dosage: 50 MG/15 DAYS (2X/MONTH)
  6. ZUCLOPENTHIXOL [Concomitant]
     Active Substance: ZUCLOPENTHIXOL
     Dosage: 400 MG/15 DAYS (2X/MONTH)

REACTIONS (3)
  - Polydipsia [Unknown]
  - Respiratory arrest [Unknown]
  - Seizure [Unknown]
